FAERS Safety Report 22033860 (Version 1)
Quarter: 2023Q1

REPORT INFORMATION
  Report Type: Spontaneous
  Country: US (occurrence: None)
  Receive Date: 20230222
  Receipt Date: 20230222
  Transmission Date: 20230417
  Serious: Yes (Hospitalization)
  Sender: FDA-Public Use
  Company Number: None

PATIENT
  Sex: Male

DRUGS (2)
  1. SKYRIZI [Suspect]
     Active Substance: RISANKIZUMAB-RZAA
     Indication: Crohn^s disease
     Dosage: 360MG EVERY  8WEEKS SC?
     Route: 058
     Dates: start: 202211
  2. GATTEX [Suspect]
     Active Substance: TEDUGLUTIDE\WATER

REACTIONS (3)
  - Sepsis [None]
  - Hyperhidrosis [None]
  - Therapy cessation [None]
